FAERS Safety Report 21496833 (Version 4)
Quarter: 2023Q1

REPORT INFORMATION
  Report Type: Spontaneous
  Country: DE (occurrence: DE)
  Receive Date: 20221022
  Receipt Date: 20230310
  Transmission Date: 20230417
  Serious: Yes (Other)
  Sender: FDA-Public Use
  Company Number: None

PATIENT
  Age: 51 Year
  Sex: Female

DRUGS (2)
  1. CIPROFLOXACIN [Suspect]
     Active Substance: CIPROFLOXACIN
     Indication: Acute sinusitis
     Dosage: DURATION : 3 DAYS
     Route: 042
     Dates: start: 20220725, end: 20220728
  2. DIETARY SUPPLEMENT\HERBALS [Concomitant]
     Active Substance: DIETARY SUPPLEMENT\HERBALS
     Indication: Acute sinusitis
     Route: 065
     Dates: start: 2022

REACTIONS (24)
  - Infusion site mobility decreased [Not Recovered/Not Resolved]
  - Cellulitis [Recovering/Resolving]
  - Pain in extremity [Recovering/Resolving]
  - Skin burning sensation [Recovering/Resolving]
  - Depression [Recovering/Resolving]
  - Tendon discomfort [Recovering/Resolving]
  - Tendon pain [Recovering/Resolving]
  - Phlebitis [Recovering/Resolving]
  - Abdominal pain upper [Recovering/Resolving]
  - Headache [Recovering/Resolving]
  - Paraesthesia [Recovering/Resolving]
  - Tenosynovitis [Recovering/Resolving]
  - Pain [Recovering/Resolving]
  - Tendon disorder [Recovering/Resolving]
  - Erythema [Recovering/Resolving]
  - Peripheral swelling [Recovering/Resolving]
  - Administration site pain [Recovering/Resolving]
  - Administration site erythema [Recovering/Resolving]
  - Administration site induration [Recovering/Resolving]
  - Administration site discomfort [Recovering/Resolving]
  - Arthralgia [Recovering/Resolving]
  - Joint swelling [Recovering/Resolving]
  - Loss of personal independence in daily activities [Unknown]
  - Sick leave [Unknown]

NARRATIVE: CASE EVENT DATE: 20220101
